FAERS Safety Report 15951859 (Version 1)
Quarter: 2019Q1

REPORT INFORMATION
  Report Type: Spontaneous
  Country: CA (occurrence: CA)
  Receive Date: 20190212
  Receipt Date: 20190212
  Transmission Date: 20190417
  Serious: Yes (Other)
  Sender: FDA-Public Use
  Company Number: CA-PFIZER INC-2019057132

PATIENT
  Age: 59 Year
  Sex: Female

DRUGS (5)
  1. IBRANCE [Suspect]
     Active Substance: PALBOCICLIB
     Dosage: UNK
  2. ZOLEDRONIC ACID [Concomitant]
     Active Substance: ZOLEDRONIC ACID
     Dosage: UNK
     Route: 065
  3. TAMOXIFEN CITRATE. [Suspect]
     Active Substance: TAMOXIFEN CITRATE
     Dosage: UNK
     Route: 048
     Dates: start: 2011
  4. PAMIDRONIC ACID [Concomitant]
     Active Substance: PAMIDRONIC ACID
     Dosage: UNK
     Route: 065
  5. DENOSUMAB [Concomitant]
     Active Substance: DENOSUMAB
     Dosage: UNK
     Route: 065

REACTIONS (2)
  - Osteonecrosis of jaw [Not Recovered/Not Resolved]
  - Neoplasm progression [Not Recovered/Not Resolved]
